FAERS Safety Report 9340655 (Version 1)
Quarter: 2013Q2

REPORT INFORMATION
  Report Type: Report from Study
  Country: US (occurrence: US)
  Receive Date: 20130610
  Receipt Date: 20130610
  Transmission Date: 20140414
  Serious: Yes (Death, Congenital Anomaly)
  Sender: FDA-Public Use
  Company Number: US-VIIV HEALTHCARE LIMITED-A1025573B

PATIENT
  Sex: 0

DRUGS (2)
  1. COMBIVIR [Suspect]
     Indication: ANTIRETROVIRAL THERAPY
     Dosage: 2TAB PER DAY
     Route: 064
     Dates: start: 20130409
  2. KALETRA [Suspect]
     Indication: ANTIRETROVIRAL THERAPY
     Dosage: 4U PER DAY
     Route: 064
     Dates: start: 20130409

REACTIONS (3)
  - Dandy-Walker syndrome [Unknown]
  - Foetal death [Fatal]
  - Foetal exposure during pregnancy [Unknown]
